FAERS Safety Report 12430290 (Version 2)
Quarter: 2016Q2

REPORT INFORMATION
  Report Type: Spontaneous
  Country: US (occurrence: US)
  Receive Date: 20160602
  Receipt Date: 20160606
  Transmission Date: 20160815
  Serious: No
  Sender: FDA-Public Use
  Company Number: US-BIOMARINAP-US-2016-109975

PATIENT
  Sex: Male
  Weight: 15.24 kg

DRUGS (1)
  1. VIMIZIM [Suspect]
     Active Substance: ELOSULFASE ALFA
     Indication: MUCOPOLYSACCHARIDOSIS IV
     Dosage: 35 MG, QW
     Route: 042

REACTIONS (8)
  - Pyrexia [Unknown]
  - Device issue [Unknown]
  - Catheter site pain [Unknown]
  - Headache [Unknown]
  - Nausea [Unknown]
  - Abdominal pain upper [Unknown]
  - Incorrect drug administration duration [Unknown]
  - Decreased appetite [Unknown]
